FAERS Safety Report 24192202 (Version 2)
Quarter: 2024Q3

REPORT INFORMATION
  Report Type: Report from Study
  Country: US (occurrence: US)
  Receive Date: 20240809
  Receipt Date: 20240920
  Transmission Date: 20241017
  Serious: Yes (Hospitalization, Other)
  Sender: ABBVIE
  Company Number: US-ABBVIE-5868027

PATIENT
  Age: 88 Year
  Sex: Female
  Weight: 60 kg

DRUGS (29)
  1. HUMIRA [Suspect]
     Active Substance: ADALIMUMAB
     Indication: Product used for unknown indication
     Dosage: CITRATE FREE
     Route: 058
     Dates: start: 201710
  2. HUMIRA [Suspect]
     Active Substance: ADALIMUMAB
     Route: 058
  3. AZITHROMYCIN [Concomitant]
     Active Substance: AZITHROMYCIN
     Indication: Product used for unknown indication
     Route: 048
  4. METHYLPREDNISOLONE [Concomitant]
     Active Substance: METHYLPREDNISOLONE
     Indication: Product used for unknown indication
     Route: 042
  5. ROCEPHIN [Concomitant]
     Active Substance: CEFTRIAXONE SODIUM
     Indication: Product used for unknown indication
     Route: 042
  6. ISOVUE 370 [Concomitant]
     Active Substance: IOPAMIDOL
     Indication: Product used for unknown indication
     Route: 042
  7. SODIUM CHLORIDE [Concomitant]
     Active Substance: SODIUM CHLORIDE
     Indication: Product used for unknown indication
     Dosage: STRENGTH: 0.9% BOLUS 100 ML
     Route: 042
  8. SODIUM CHLORIDE [Concomitant]
     Active Substance: SODIUM CHLORIDE
     Indication: Product used for unknown indication
     Dosage: FLUSH 10 ML STRENGTH: 0.9%
     Route: 042
  9. SODIUM CHLORIDE [Concomitant]
     Active Substance: SODIUM CHLORIDE
     Indication: Product used for unknown indication
     Dosage: STRENGTH: 0.9% BOLUS 100 ML
     Route: 042
  10. TYLENOL [Concomitant]
     Active Substance: ACETAMINOPHEN
     Indication: Product used for unknown indication
     Dosage: TIME INTERVAL: AS NECESSARY: TYPICALLY 500 MG TWICE DAILY
  11. COZAAR [Concomitant]
     Active Substance: LOSARTAN POTASSIUM
     Indication: Product used for unknown indication
     Dosage: TAKE 1 TABLET (100 MG) BY MOUTH AT?BEDTIME
  12. ATORVASTATIN [Concomitant]
     Active Substance: ATORVASTATIN
     Indication: Product used for unknown indication
  13. ATORVASTATIN [Concomitant]
     Active Substance: ATORVASTATIN
     Indication: Product used for unknown indication
     Route: 048
  14. METFORMIN [Concomitant]
     Active Substance: METFORMIN HYDROCHLORIDE
     Indication: Product used for unknown indication
  15. JANUVIA [Concomitant]
     Active Substance: SITAGLIPTIN PHOSPHATE
     Indication: Product used for unknown indication
     Dosage: NIGHTLY
  16. AMLODIPINE [Concomitant]
     Active Substance: AMLODIPINE BESYLATE
     Indication: Product used for unknown indication
  17. ALBUTEROL [Concomitant]
     Active Substance: ALBUTEROL
     Indication: Wheezing
  18. ASPIRIN [Concomitant]
     Active Substance: ASPIRIN
     Indication: Product used for unknown indication
     Dosage: CHEW 1 TABLET (81 MG) DAILY.
  19. BRIMONIDINE [Concomitant]
     Active Substance: BRIMONIDINE TARTRATE
     Indication: Product used for unknown indication
     Dosage: ADMINISTER 1 DROP INTO BOTH EYES 3 (THREE) TIMES A DAY?% OPHTHALMIC SOLUTION
  20. DEXTROMETHORPHAN [Concomitant]
     Active Substance: DEXTROMETHORPHAN
     Indication: Cough
     Dosage: TAKE 10 ML (60 MG) BY MOUTH DAILY AS
  21. DICLOFENAC SODIUM [Concomitant]
     Active Substance: DICLOFENAC\DICLOFENAC SODIUM
     Indication: Arthralgia
     Dosage: 1 % GEL?APPLY 2 G TOPICALLY 2?(TWO) TIMES A DAY
  22. IMODIUM [Concomitant]
     Active Substance: LOPERAMIDE HYDROCHLORIDE
     Indication: Diarrhoea
     Dosage: TAKE 1 CAPSULE (2 MG) BY MOUTH 4 (FOUR) TIMES A DAY
  23. LUMIGAN [Concomitant]
     Active Substance: BIMATOPROST
     Indication: Product used for unknown indication
     Dosage: ADMINISTER 1 DROP?INTO THE LEFT EYE AT?BEDTIME
  24. PRILOSEC [Concomitant]
     Active Substance: OMEPRAZOLE MAGNESIUM
     Indication: Product used for unknown indication
     Dosage: TAKE 1 CAPSULE (20 MG) BY MOUTH AT?BEDTIME.
  25. POLYETHYLENE GLYCOL [Concomitant]
     Active Substance: POLYETHYLENE GLYCOL
     Indication: Dry eye
     Dosage: ADMINISTER 1 DROP?(SYSTANE ULTRA OP) INTO BOTH EYES 4?(FOUR) TIMES A DAY
  26. PREDNISONE [Concomitant]
     Active Substance: PREDNISONE
     Indication: Product used for unknown indication
     Dosage: 5-10MG
     Dates: start: 2014, end: 2017
  27. PREDNISONE [Concomitant]
     Active Substance: PREDNISONE
     Indication: Product used for unknown indication
     Dosage: DAILY SINCE 2019
     Dates: start: 2019
  28. PREDNISONE [Concomitant]
     Active Substance: PREDNISONE
     Indication: Product used for unknown indication
  29. INDERAL [Concomitant]
     Active Substance: PROPRANOLOL HYDROCHLORIDE
     Indication: Product used for unknown indication
     Dosage: TAKE 1 TABLET (10 MG) BY MOUTH 2?TIMES A DAY.

REACTIONS (32)
  - Pneumothorax [Unknown]
  - Joint swelling [Unknown]
  - Back pain [Unknown]
  - Urosepsis [Unknown]
  - Gait disturbance [Unknown]
  - Asthenia [Unknown]
  - Gait inability [Unknown]
  - Pain [Unknown]
  - Pyrexia [Unknown]
  - Tremor [Unknown]
  - Ear pain [Unknown]
  - Headache [Unknown]
  - Arthropathy [Unknown]
  - Squamous cell carcinoma of skin [Unknown]
  - Dyspnoea exertional [Unknown]
  - White blood cell count increased [Unknown]
  - Blood glucose increased [Unknown]
  - Type V hyperlipidaemia [Unknown]
  - Onychomycosis [Unknown]
  - Nail dystrophy [Unknown]
  - Ingrowing nail [Unknown]
  - Hyperkeratosis [Unknown]
  - Osteoarthritis [Unknown]
  - Depression [Unknown]
  - Asthenia [Unknown]
  - Visual impairment [Unknown]
  - Memory impairment [Unknown]
  - Incontinence [Unknown]
  - Joint effusion [Unknown]
  - Fall [Unknown]
  - Abdominal distension [Unknown]
  - Abdominal mass [Unknown]

NARRATIVE: CASE EVENT DATE: 20230901
